FAERS Safety Report 7464840-7 (Version None)
Quarter: 2011Q2

REPORT INFORMATION
  Report Type: 
  Country: None (occurrence: None)
  Receive Date: 20110509
  Receipt Date: 20080926
  Transmission Date: 20111010
  Serious: Yes (Death, Other)
  Sender: FDA-Public Use
  Company Number: US-BAYER-200836640NA

PATIENT
  Age: 29 Month
  Sex: Female
  Weight: 11.7 kg

DRUGS (13)
  1. CRYOPRECIPITATES [Concomitant]
     Dosage: 25 ML, UNK
     Route: 042
     Dates: start: 20050629
  2. PLATELETS [Concomitant]
     Dosage: 120 ML, UNK
     Route: 042
     Dates: start: 20050629
  3. NITROGLYCERIN [Concomitant]
     Dosage: UNK
     Route: 042
     Dates: start: 20050629
  4. NIPRIDE [Concomitant]
     Dosage: UNK
     Route: 042
     Dates: start: 20050629
  5. BUMEX [Concomitant]
  6. PLASMA [Concomitant]
     Dosage: 120 ML, UNK
     Route: 042
     Dates: start: 20050629
  7. DIGOXIN [Concomitant]
     Dosage: 10MCG/KG
     Route: 042
     Dates: start: 20050629
  8. AMIODARONE [Concomitant]
     Dosage: 2 DOSES 5M/KG
     Route: 042
     Dates: start: 20050629
  9. LASIX [Concomitant]
  10. TRASYLOL [Suspect]
     Indication: CARDIAC OPERATION
     Dosage: 0.9CC INITIAL TEST DOSE
     Dates: start: 20050629
  11. METOLAZONE [Concomitant]
  12. DOPAMINE HCL [Concomitant]
     Dosage: 3
     Route: 042
     Dates: start: 20050629
  13. SYNTHROID [Concomitant]

REACTIONS (16)
  - NODAL ARRHYTHMIA [None]
  - PAIN [None]
  - ANHEDONIA [None]
  - STRESS [None]
  - EMOTIONAL DISORDER [None]
  - POST PROCEDURAL COMPLICATION [None]
  - CONVULSION [None]
  - MYOCARDIAL INFARCTION [None]
  - RENAL IMPAIRMENT [None]
  - UNEVALUABLE EVENT [None]
  - FEAR [None]
  - INJURY [None]
  - RENAL FAILURE [None]
  - NECROTISING COLITIS [None]
  - RENAL INJURY [None]
  - ANXIETY [None]
